FAERS Safety Report 8154687-0 (Version None)
Quarter: 2012Q1

REPORT INFORMATION
  Report Type: 
  Country: None (occurrence: None)
  Receive Date: 20120221
  Receipt Date: 20120210
  Transmission Date: 20120608
  Serious: Yes (Other)
  Sender: FDA-Public Use
  Company Number: CHPA2012JP003058

PATIENT
  Sex: Male

DRUGS (2)
  1. NICOTINE [Concomitant]
     Indication: SMOKING CESSATION THERAPY
     Dosage: 52.5 MG, DAILY
     Route: 062
     Dates: start: 20120121
  2. NICOTINE [Suspect]
     Indication: SMOKING CESSATION THERAPY
     Dosage: UNK, UNK

REACTIONS (4)
  - FEELING ABNORMAL [None]
  - DIZZINESS [None]
  - PHARYNGEAL OEDEMA [None]
  - TINNITUS [None]
